FAERS Safety Report 17764842 (Version 6)
Quarter: 2020Q4

REPORT INFORMATION
  Report Type: Spontaneous
  Country: US (occurrence: US)
  Receive Date: 20200511
  Receipt Date: 20201230
  Transmission Date: 20210113
  Serious: No
  Sender: FDA-Public Use
  Company Number: US-GLAXOSMITHKLINE-US2020AMR076967

PATIENT
  Sex: Female

DRUGS (6)
  1. ZEJULA [Suspect]
     Active Substance: NIRAPARIB
     Indication: OVARIAN CANCER
     Dosage: 300 MG, QD
     Dates: start: 20200501
  2. ZEJULA [Suspect]
     Active Substance: NIRAPARIB
     Dosage: 2 DF (PILLS), QD
  3. ZEJULA [Suspect]
     Active Substance: NIRAPARIB
     Dosage: 200 MG, QD
  4. ZEJULA [Suspect]
     Active Substance: NIRAPARIB
     Dosage: 300 MG, QD
     Dates: start: 20200506
  5. ZEJULA [Suspect]
     Active Substance: NIRAPARIB
     Dosage: 300 MG
  6. ZEJULA [Suspect]
     Active Substance: NIRAPARIB
     Dosage: 200 MG, QD

REACTIONS (8)
  - Constipation [Unknown]
  - Muscle spasms [Unknown]
  - Nausea [Unknown]
  - Insomnia [Unknown]
  - Dyspnoea exertional [Unknown]
  - Weight decreased [Unknown]
  - Hypertension [Unknown]
  - Adverse drug reaction [Unknown]
